FAERS Safety Report 17421279 (Version 2)
Quarter: 2020Q1

REPORT INFORMATION
  Report Type: Spontaneous
  Country: SK (occurrence: SK)
  Receive Date: 20200214
  Receipt Date: 20200322
  Transmission Date: 20200409
  Serious: Yes (Death, Hospitalization, Other)
  Sender: FDA-Public Use
  Company Number: NVSC2020SK035899

PATIENT
  Age: 45 Year
  Sex: Female

DRUGS (11)
  1. PERJETA [Suspect]
     Active Substance: PERTUZUMAB
     Dosage: 420 MG (SECOND ADMINISTRATION)
     Route: 042
     Dates: start: 20191004, end: 20191004
  2. EPIRUBICIN [Suspect]
     Active Substance: EPIRUBICIN
     Indication: HER-2 POSITIVE BREAST CANCER
     Dosage: UNK
     Route: 065
     Dates: start: 2019, end: 20190717
  3. MATUZUMAB [Suspect]
     Active Substance: MATUZUMAB
     Indication: HER-2 POSITIVE BREAST CANCER
     Dosage: UNK
     Route: 065
  4. HERCEPTIN [Suspect]
     Active Substance: TRASTUZUMAB
     Indication: HER-2 POSITIVE BREAST CANCER
     Route: 041
     Dates: start: 20190624
  5. DOCETAXEL. [Suspect]
     Active Substance: DOCETAXEL
     Indication: HER-2 POSITIVE BREAST CANCER
     Dosage: UNK
     Route: 065
     Dates: start: 201907
  6. ACETYLSALICYLIC ACID [Suspect]
     Active Substance: ASPIRIN
     Indication: PRODUCT USED FOR UNKNOWN INDICATION
     Dosage: UNK
     Route: 065
  7. FLUOROURACIL. [Suspect]
     Active Substance: FLUOROURACIL
     Indication: HER-2 POSITIVE BREAST CANCER
     Dosage: UNK
     Route: 065
     Dates: start: 2019, end: 20190717
  8. PARACETAMOL [Suspect]
     Active Substance: ACETAMINOPHEN
     Indication: PRODUCT USED FOR UNKNOWN INDICATION
     Dosage: UNK
     Route: 065
  9. PACLITAXEL. [Suspect]
     Active Substance: PACLITAXEL
     Indication: HER-2 POSITIVE BREAST CANCER
     Route: 042
     Dates: start: 20190624
  10. PERJETA [Suspect]
     Active Substance: PERTUZUMAB
     Indication: HER-2 POSITIVE BREAST CANCER
     Dosage: 840 MG FIRST AMINISTRATION
     Route: 042
     Dates: start: 20190827, end: 20190827
  11. CYCLOPHOSPHAMIDE. [Suspect]
     Active Substance: CYCLOPHOSPHAMIDE
     Indication: HER-2 POSITIVE BREAST CANCER
     Dosage: UNK
     Route: 065
     Dates: start: 2019, end: 20190717

REACTIONS (22)
  - Anaemia [Unknown]
  - Polyneuropathy [Not Recovered/Not Resolved]
  - Toxic epidermal necrolysis [Unknown]
  - Sopor [Unknown]
  - Asthma [Unknown]
  - Heart valve incompetence [Unknown]
  - Febrile neutropenia [Unknown]
  - Coagulopathy [Unknown]
  - Hepatic steatosis [Unknown]
  - Lymphadenopathy [Unknown]
  - Dandy-Walker syndrome [Unknown]
  - Altered state of consciousness [Unknown]
  - Thrombocytopenia [Unknown]
  - Menorrhagia [Unknown]
  - Uterine leiomyoma [Unknown]
  - Overdose [Fatal]
  - Skin exfoliation [Unknown]
  - Hypertension [Unknown]
  - Hepatic failure [Fatal]
  - Skin toxicity [Unknown]
  - Hyperglycaemia [Unknown]
  - Erythema [Unknown]

NARRATIVE: CASE EVENT DATE: 201907
